FAERS Safety Report 7804262-X (Version None)
Quarter: 2011Q4

REPORT INFORMATION
  Report Type: 
  Country: None (occurrence: None)
  Receive Date: 20111010
  Receipt Date: 20110930
  Transmission Date: 20120403
  Serious: Yes (Death, Other)
  Sender: FDA-Public Use
  Company Number: PHHY2011JP88219

PATIENT

DRUGS (10)
  1. FLUDARABINE PHOSPHATE [Concomitant]
     Dosage: 25 MG/M2, DAY 7 TO DAY 3
  2. GEMTUZUMAB OZOGAMICIN [Concomitant]
     Indication: BONE MARROW TRANSPLANT
     Dosage: 6 MG/M2, UNK
  3. MELPHALAN HYDROCHLORIDE [Concomitant]
     Dosage: 40 MG/M2, DAY 3 TO DAY 2
  4. GEMTUZUMAB OZOGAMICIN [Concomitant]
     Dosage: 3 MG/M2, UNK
  5. METHOTREXATE [Concomitant]
     Indication: PROPHYLAXIS AGAINST GRAFT VERSUS HOST DISEASE
     Dosage: UNK UKN, UNK
  6. IRRADIATION [Concomitant]
     Dosage: 4 GY, UNK
  7. CYCLOSPORINE [Suspect]
     Indication: STEM CELL TRANSPLANT
     Dosage: UNK UKN, UNK
  8. THYMOGLOBULIN [Concomitant]
     Dosage: 1.25 MG/KG, DAY 2 TO DAY 1
  9. THYMOGLOBULIN [Concomitant]
     Dosage: 0.5 MG/KG, DAY 3
  10. VORICONAZOLE [Concomitant]
     Dosage: UNK UKN, UNK

REACTIONS (2)
  - ACUTE GRAFT VERSUS HOST DISEASE IN SKIN [None]
  - ACUTE MYELOID LEUKAEMIA RECURRENT [None]
